FAERS Safety Report 5632111-7 (Version None)
Quarter: 2008Q1

REPORT INFORMATION
  Report Type: 
  Country: None (occurrence: None)
  Receive Date: 20080220
  Receipt Date: 20080211
  Transmission Date: 20080703
  Serious: Yes (Death, Life-Threatening, Hospitalization)
  Sender: FDA-Public Use
  Company Number: B0508760A

PATIENT
  Age: 82 Year
  Sex: Male
  Weight: 87 kg

DRUGS (6)
  1. DEROXAT [Suspect]
     Indication: DRUG USE FOR UNKNOWN INDICATION
     Dosage: 10MG PER DAY
     Route: 048
     Dates: start: 20050101, end: 20071201
  2. ALLOPURINOL [Suspect]
     Indication: DRUG USE FOR UNKNOWN INDICATION
     Dosage: 100MG PER DAY
     Route: 048
     Dates: start: 20050101
  3. PREVISCAN [Suspect]
     Dosage: .75MG PER DAY
     Route: 048
     Dates: start: 20070826, end: 20071201
  4. IRBESARTAN [Concomitant]
     Dosage: 150MG PER DAY
     Route: 048
  5. JOSIR [Concomitant]
     Dosage: .4MG PER DAY
     Route: 048
  6. PIASCLEDINE [Concomitant]
     Route: 048

REACTIONS (5)
  - CEREBRAL HAEMORRHAGE [None]
  - DRUG INTERACTION [None]
  - HEMIPLEGIA [None]
  - INTRACRANIAL PRESSURE INCREASED [None]
  - PROTHROMBIN LEVEL DECREASED [None]
